FAERS Safety Report 5233357-2 (Version None)
Quarter: 2007Q1

REPORT INFORMATION
  Report Type: 
  Country: None (occurrence: None)
  Receive Date: 20070206
  Receipt Date: 20070206
  Transmission Date: 20070707
  Serious: Yes (Hospitalization)
  Sender: FDA-Public Use
  Company Number: None

PATIENT
  Sex: Male
  Weight: 81.6475 kg

DRUGS (1)
  1. MEVACOR [Suspect]
     Indication: LOW DENSITY LIPOPROTEIN INCREASED
     Dosage: QD    PO
     Route: 048
     Dates: start: 19940101, end: 20030101

REACTIONS (33)
  - ALOPECIA [None]
  - ASTHENIA [None]
  - BALANCE DISORDER [None]
  - CHEST PAIN [None]
  - COORDINATION ABNORMAL [None]
  - DECREASED ACTIVITY [None]
  - DISTURBANCE IN ATTENTION [None]
  - DIZZINESS [None]
  - DYSPNOEA EXERTIONAL [None]
  - EYE DISCHARGE [None]
  - FALL [None]
  - FATIGUE [None]
  - GAIT DISTURBANCE [None]
  - GASTROINTESTINAL DISORDER [None]
  - GASTROOESOPHAGEAL REFLUX DISEASE [None]
  - GENERAL PHYSICAL HEALTH DETERIORATION [None]
  - HEADACHE [None]
  - HYPERHIDROSIS [None]
  - LOSS OF LIBIDO [None]
  - MEMORY IMPAIRMENT [None]
  - MICTURITION URGENCY [None]
  - MOUTH ULCERATION [None]
  - MUSCLE SPASMS [None]
  - MUSCULAR WEAKNESS [None]
  - NEUROPATHY PERIPHERAL [None]
  - PAIN [None]
  - POLLAKIURIA [None]
  - SLEEP DISORDER [None]
  - THINKING ABNORMAL [None]
  - TREMOR [None]
  - URINARY RETENTION [None]
  - WEIGHT DECREASED [None]
  - WEIGHT INCREASED [None]
